FAERS Safety Report 7503212-3 (Version None)
Quarter: 2011Q2

REPORT INFORMATION
  Report Type: 
  Country: None (occurrence: None)
  Receive Date: 20110524
  Receipt Date: 20110524
  Transmission Date: 20111010
  Serious: No
  Sender: FDA-Public Use
  Company Number: None

PATIENT
  Age: 58 Year
  Sex: Male
  Weight: 110 kg

DRUGS (1)
  1. BUPIVACAINE HCL [Suspect]
     Indication: HIP ARTHROPLASTY
     Dosage: 13.5 MG X1 SPINAL
     Route: 024
     Dates: start: 20110523

REACTIONS (1)
  - DRUG INEFFECTIVE [None]
